FAERS Safety Report 10926984 (Version 2)
Quarter: 2015Q2

REPORT INFORMATION
  Report Type: Spontaneous
  Country: IE (occurrence: None)
  Receive Date: 20150316
  Receipt Date: 20150430
  Transmission Date: 20150821
  Serious: Yes (Hospitalization, Other)
  Sender: FDA-Public Use
  Company Number: IE2015030209

PATIENT
  Age: 61 Year
  Sex: Male
  Weight: 65 kg

DRUGS (19)
  1. KIVEXA [Suspect]
     Active Substance: ABACAVIR SULFATE\LAMIVUDINE
     Indication: HIV INFECTION
  2. METHADONE [Concomitant]
     Active Substance: METHADONE HYDROCHLORIDE
  3. FUROSEMIDE (FUROSEMIDE) [Concomitant]
     Active Substance: FUROSEMIDE
  4. NEORECORMON (EPOETIN BETA) [Concomitant]
  5. LANSOPRAZOLE (LANSOPRAZOLE) [Concomitant]
     Active Substance: LANSOPRAZOLE
  6. LACRI-LUBE EYE OINTMENT (LIGHT LIQUID PARAFFIN + PETROLATUM + WOOL FAT) [Concomitant]
  7. CENTRUM (MINERALS NOS, VITAMINS NOS) [Concomitant]
  8. SEPTRIN [Suspect]
     Active Substance: SULFAMETHOXAZOLE\TRIMETHOPRIM
     Indication: PROPHYLAXIS
  9. LAXOSE (LACTULOSE) [Concomitant]
  10. THIAMINE  (THIAMINE) [Concomitant]
     Active Substance: THIAMINE
  11. GALFER (FERROUS FUMARATE) [Concomitant]
  12. MOVICOL (MACROGOL + POTASSIUM CHLORIDE + SODIUM BICARBONATE + SODIUM CHLORIDE) [Concomitant]
  13. LEDIPASVIR + SOFOSBUVIR [Suspect]
     Active Substance: LEDIPASVIR\SOFOSBUVIR
     Indication: HEPATITIS C
     Route: 048
     Dates: start: 20141223
  14. PREZISTA [Suspect]
     Active Substance: DARUNAVIR ETHANOLATE
     Indication: HIV INFECTION
  15. NORVIR [Suspect]
     Active Substance: RITONAVIR
     Indication: HIV INFECTION
  16. DIAZEPAM (DIAZEPAM) [Concomitant]
     Active Substance: DIAZEPAM
  17. COPEGUS [Suspect]
     Active Substance: RIBAVIRIN
     Indication: HEPATITIS C
     Dates: start: 20141223, end: 20150224
  18. CALCICHEW-D3 FORTE (ASCORBIC ACID, CALCIUM CARBONATE, COLECALCIFEROL, PYRIDOXINE HYDROCHLORIDE) [Concomitant]
  19. VERSATIS (LIDOCAINE) [Concomitant]

REACTIONS (6)
  - Somnolence [None]
  - Lower respiratory tract infection [None]
  - Encephalopathy [None]
  - Asterixis [None]
  - Asthenia [None]
  - Fluid retention [None]

NARRATIVE: CASE EVENT DATE: 20150220
